FAERS Safety Report 25004831 (Version 1)
Quarter: 2025Q1

REPORT INFORMATION
  Report Type: Spontaneous
  Country: US (occurrence: None)
  Receive Date: 20250223
  Receipt Date: 20250223
  Transmission Date: 20250409
  Serious: No
  Sender: FDA-CTU
  Company Number: None

PATIENT
  Age: 45 Year
  Sex: Female
  Weight: 92.25 kg

DRUGS (12)
  1. ZEPBOUND [Suspect]
     Active Substance: TIRZEPATIDE
     Indication: Obesity
     Dosage: OTHER QUANTITY : 1 SINGLE-DOSE VIAL;?OTHER FREQUENCY : ONCE A WEEK;?
     Route: 058
     Dates: start: 20250222, end: 20250222
  2. EFFEXOR [Concomitant]
     Active Substance: VENLAFAXINE HYDROCHLORIDE
  3. GABAPENTIN [Concomitant]
     Active Substance: GABAPENTIN
  4. ADDERALL [Concomitant]
     Active Substance: AMPHETAMINE ASPARTATE\AMPHETAMINE SULFATE\DEXTROAMPHETAMINE SACCHARATE\DEXTROAMPHETAMINE SULFATE
  5. TRAZODONE [Concomitant]
     Active Substance: TRAZODONE HYDROCHLORIDE
  6. v-ring [Concomitant]
  7. RETIN-A [Concomitant]
     Active Substance: TRETINOIN
  8. VITAMIN D [Concomitant]
     Active Substance: VITAMIN D NOS
  9. women^s multi-vitamin [Concomitant]
  10. COLLAGEN [Concomitant]
     Active Substance: COLLAGEN
  11. MAGNESIUM [Concomitant]
     Active Substance: MAGNESIUM
  12. supergreens supplement [Concomitant]

REACTIONS (2)
  - Pain [None]
  - Lymph node pain [None]

NARRATIVE: CASE EVENT DATE: 20250223
